FAERS Safety Report 12896877 (Version 1)
Quarter: 2016Q4

REPORT INFORMATION
  Report Type: Spontaneous
  Country: IR (occurrence: IR)
  Receive Date: 20161031
  Receipt Date: 20161031
  Transmission Date: 20170207
  Serious: Yes (Hospitalization)
  Sender: FDA-Public Use
  Company Number: IR-FERRINGPH-2016FE05726

PATIENT

DRUGS (2)
  1. CHORIONIC GONADOTROPHIN [Suspect]
     Active Substance: CHORIOGONADOTROPIN ALFA
     Indication: OVULATION INDUCTION
     Dosage: 1000 IU, ONCE/SINGLE ON THE 12TH DAY
     Route: 065
  2. MENOTROPHIN [Suspect]
     Active Substance: MENOTROPINS
     Indication: OVULATION INDUCTION
     Dosage: 75 IU ON THE 8TH AND 10TH DAYS
     Route: 065

REACTIONS (5)
  - Appendicitis perforated [Recovered/Resolved]
  - Ovarian hyperstimulation syndrome [Recovered/Resolved]
  - Pancreatitis [Recovered/Resolved]
  - Product use issue [Recovered/Resolved]
  - Peritonitis [Recovered/Resolved]
